FAERS Safety Report 18256039 (Version 5)
Quarter: 2021Q4

REPORT INFORMATION
  Report Type: Other
  Country: KR (occurrence: KR)
  Receive Date: 20200910
  Receipt Date: 20211013
  Transmission Date: 20220303
  Serious: Yes (Death, Hospitalization, Other)
  Sender: FDA-Public Use
  Company Number: KR-ROCHE-2672070

PATIENT
  Age: 71 Year
  Sex: Male
  Weight: 64.4 kg

DRUGS (28)
  1. ATEZOLIZUMAB [Suspect]
     Active Substance: ATEZOLIZUMAB
     Indication: Small cell lung cancer extensive stage
     Route: 041
     Dates: start: 20200804
  2. CARBOPLATIN [Suspect]
     Active Substance: CARBOPLATIN
     Indication: Small cell lung cancer extensive stage
     Route: 042
     Dates: start: 20200804
  3. ETOPOSIDE [Suspect]
     Active Substance: ETOPOSIDE
     Indication: Small cell lung cancer extensive stage
     Dosage: PRECEDDING DOSAGES WERE ON 05/AUG/2020 AND 06/AUG/2020
     Route: 042
     Dates: start: 20200804
  4. ETOPOSIDE [Suspect]
     Active Substance: ETOPOSIDE
     Route: 042
     Dates: start: 20200804
  5. LYRICA [Concomitant]
     Active Substance: PREGABALIN
     Indication: Herpes virus infection
     Route: 048
     Dates: start: 20200827, end: 20200828
  6. ACLOFEN [Concomitant]
     Indication: Herpes virus infection
     Route: 048
     Dates: start: 20200829, end: 20200831
  7. GLUCOPHAGE [Concomitant]
     Active Substance: METFORMIN HYDROCHLORIDE
     Indication: Diabetes mellitus
     Route: 048
     Dates: start: 20200729
  8. VENITOL [Concomitant]
     Indication: Haemorrhoids
     Route: 048
     Dates: start: 20200901, end: 20200923
  9. REBAMIPIDE [Concomitant]
     Active Substance: REBAMIPIDE
     Indication: Prophylaxis
     Route: 048
     Dates: start: 20200731
  10. REBAMIPIDE [Concomitant]
     Active Substance: REBAMIPIDE
     Indication: Gastritis
  11. NALOXONE HYDROCHLORIDE\OXYCODONE HYDROCHLORIDE [Concomitant]
     Active Substance: NALOXONE HYDROCHLORIDE\OXYCODONE HYDROCHLORIDE
     Indication: Cancer pain
     Dates: start: 20200829, end: 20200831
  12. NALOXONE HYDROCHLORIDE\OXYCODONE HYDROCHLORIDE [Concomitant]
     Active Substance: NALOXONE HYDROCHLORIDE\OXYCODONE HYDROCHLORIDE
     Indication: Prophylaxis
  13. LEVODROPROPIZINE [Concomitant]
     Active Substance: LEVODROPROPIZINE
     Indication: Cough
     Dates: start: 20200827, end: 20200828
  14. ACETYLCYSTEINE [Concomitant]
     Active Substance: ACETYLCYSTEINE
     Indication: Productive cough
     Dates: start: 20200827, end: 20200828
  15. TRASPEN SEMI [Concomitant]
     Indication: Cancer pain
     Route: 048
     Dates: start: 20200731
  16. MEDILAC-S [Concomitant]
     Indication: Haemorrhoids
     Route: 048
     Dates: start: 20200901, end: 20200923
  17. TACOPEN [Concomitant]
     Indication: Prophylaxis
     Route: 048
     Dates: start: 20200828, end: 20200831
  18. TACOPEN [Concomitant]
     Indication: Cancer pain
  19. MEPERIDINE HYDROCHLORIDE [Concomitant]
     Active Substance: MEPERIDINE HYDROCHLORIDE
     Indication: Cancer pain
     Route: 042
     Dates: start: 20201003, end: 20201004
  20. MEPERIDINE HYDROCHLORIDE [Concomitant]
     Active Substance: MEPERIDINE HYDROCHLORIDE
     Route: 042
     Dates: start: 20201006, end: 20201006
  21. MORPHINE SULFATE [Concomitant]
     Active Substance: MORPHINE SULFATE
     Route: 042
     Dates: start: 20201006, end: 20201007
  22. PANTOPRAZOLE SODIUM [Concomitant]
     Active Substance: PANTOPRAZOLE SODIUM
     Indication: Peptic ulcer
     Route: 042
     Dates: start: 20200925, end: 20201008
  23. HALOPERIDOL [Concomitant]
     Active Substance: HALOPERIDOL
     Indication: Delirium
     Route: 042
     Dates: start: 20201005, end: 20201005
  24. HALOPERIDOL [Concomitant]
     Active Substance: HALOPERIDOL
     Route: 042
     Dates: start: 20201008, end: 20201008
  25. TRAMADOL [Concomitant]
     Active Substance: TRAMADOL
     Indication: Cancer pain
     Route: 042
     Dates: start: 20201001, end: 20201007
  26. LASIX [Concomitant]
     Active Substance: FUROSEMIDE
     Indication: Oedema
     Route: 042
     Dates: start: 20200928, end: 20201008
  27. PROPACETAMOL HYDROCHLORIDE [Concomitant]
     Active Substance: PROPACETAMOL HYDROCHLORIDE
     Indication: Pyrexia
     Route: 042
     Dates: start: 20200926, end: 20200926
  28. FENTANYL [Concomitant]
     Active Substance: FENTANYL
     Indication: Cancer pain
     Dosage: 25 MCG
     Dates: start: 20201005, end: 20201008

REACTIONS (12)
  - Colitis [Fatal]
  - Hypokalaemia [Recovered/Resolved]
  - Blood bilirubin increased [Recovered/Resolved]
  - Aspartate aminotransferase increased [Recovered/Resolved]
  - Alanine aminotransferase increased [Recovered/Resolved]
  - Haemorrhoids [Not Recovered/Not Resolved]
  - Constipation [Not Recovered/Not Resolved]
  - Hypertension [Recovered/Resolved]
  - Diarrhoea [Recovered/Resolved]
  - Decreased appetite [Not Recovered/Not Resolved]
  - Hypotension [Recovered/Resolved]
  - Stomatitis [Not Recovered/Not Resolved]

NARRATIVE: CASE EVENT DATE: 20200827
